FAERS Safety Report 8481921-X (Version None)
Quarter: 2012Q3

REPORT INFORMATION
  Report Type: 
  Country: None (occurrence: None)
  Receive Date: 20120702
  Receipt Date: 20120626
  Transmission Date: 20120928
  Serious: Yes (Hospitalization)
  Sender: FDA-Public Use
  Company Number: US-B.I. PHARMACEUTICALS,INC./RIDGEFIELD-2012-BP-14536BP

PATIENT
  Sex: Female

DRUGS (6)
  1. VITAMIN E [Concomitant]
     Indication: SUPPLEMENTATION THERAPY
  2. NORVASC [Concomitant]
     Indication: HYPERTENSION
  3. MULTI-VITAMIN [Concomitant]
     Indication: SUPPLEMENTATION THERAPY
  4. VITAMIN B-12 [Concomitant]
     Indication: SUPPLEMENTATION THERAPY
  5. ARIMIDEX [Concomitant]
     Indication: BREAST CANCER
  6. SPIRIVA [Suspect]
     Indication: CHRONIC OBSTRUCTIVE PULMONARY DISEASE
     Dosage: 18 MCG
     Route: 055
     Dates: start: 20111101, end: 20120101

REACTIONS (2)
  - DYSPNOEA [None]
  - LIMB DISCOMFORT [None]
